FAERS Safety Report 4277782-5 (Version None)
Quarter: 2004Q1

REPORT INFORMATION
  Report Type: 
  Country: None (occurrence: None)
  Receive Date: 20040121
  Receipt Date: 20030318
  Transmission Date: 20041129
  Serious: Yes (Hospitalization)
  Sender: FDA-Public Use
  Company Number: 2003-02-2455

PATIENT
  Age: 20 Year
  Sex: Female
  Weight: 64 kg

DRUGS (5)
  1. SUBUTEX [Suspect]
     Indication: DRUG DEPENDENCE
     Dosage: SEE IMAGE
     Route: 060
     Dates: start: 20010611, end: 20010612
  2. SUBUTEX [Suspect]
     Indication: DRUG DEPENDENCE
     Dosage: SEE IMAGE
     Route: 060
     Dates: start: 20010613, end: 20010725
  3. SUBUTEX [Suspect]
     Indication: DRUG DEPENDENCE
     Dosage: SEE IMAGE
     Route: 060
     Dates: start: 20010726, end: 20011026
  4. SUBUTEX [Suspect]
     Indication: DRUG DEPENDENCE
     Dosage: SEE IMAGE
     Route: 060
     Dates: start: 20011027, end: 20011120
  5. INTERFERON INJECTABLE POWDER [Suspect]
     Indication: HEPATITIS C
     Dosage: 100 MCG QW
     Route: 058
     Dates: start: 20010814

REACTIONS (1)
  - DEPRESSED MOOD [None]
